FAERS Safety Report 20968094 (Version 4)
Quarter: 2023Q2

REPORT INFORMATION
  Report Type: Spontaneous
  Country: RU (occurrence: RU)
  Receive Date: 20220616
  Receipt Date: 20230628
  Transmission Date: 20230722
  Serious: Yes (Other)
  Sender: FDA-Public Use
  Company Number: RU-NOVARTISPH-NVSC2022RU137670

PATIENT

DRUGS (1)
  1. METHOTREXATE [Suspect]
     Active Substance: METHOTREXATE
     Indication: Lymphoproliferative disorder
     Dosage: 600 MG
     Route: 065

REACTIONS (1)
  - Pulmonary toxicity [Unknown]
